FAERS Safety Report 5114634-2 (Version None)
Quarter: 2006Q3

REPORT INFORMATION
  Report Type: 
  Country: None (occurrence: None)
  Receive Date: 20060922
  Receipt Date: 20060905
  Transmission Date: 20061208
  Serious: Yes (Other)
  Sender: FDA-Public Use
  Company Number: WAES 0609USA02735

PATIENT
  Age: 52 Year
  Sex: Male
  Weight: 73.9363 kg

DRUGS (14)
  1. PRINIVIL [Suspect]
     Dosage: 10 MG/DAILY/PO
     Route: 048
  2. TAB METOPROLOL TARTRATE 25 MG [Suspect]
     Dosage: 12.5 MG/BID/PO
     Route: 048
  3. LEUCOVORIN CALCIUM [Suspect]
     Dosage: SEE IMAGE
     Route: 042
     Dates: start: 20060727
  4. LEUCOVORIN CALCIUM [Suspect]
     Dosage: SEE IMAGE
     Route: 042
     Dates: start: 20060810
  5. OXALIPLATIN [Concomitant]
     Dosage: SEE IMAGE
     Route: 042
     Dates: start: 20060727
  6. OXALIPLATIN [Concomitant]
     Dosage: SEE IMAGE
     Route: 042
     Dates: start: 20060810
  7. ERBITUX [Concomitant]
     Dosage: SEE IMAGE
     Dates: start: 20060803
  8. ERBITUX [Concomitant]
     Dosage: SEE IMAGE
     Dates: start: 20060810
  9. FLUOROURACIL [Suspect]
     Dosage: SEE IMAGE
     Route: 042
     Dates: start: 20060729
  10. FLUOROURACIL [Suspect]
     Dosage: SEE IMAGE
     Route: 042
     Dates: start: 20060810
  11. FLUOROURACIL [Suspect]
     Dosage: SEE IMAGE
     Route: 042
     Dates: start: 20060810
  12. LIPITOR [Concomitant]
  13. ASPIRIN [Concomitant]
  14. METFORMIN HCL [Concomitant]

REACTIONS (9)
  - BLOOD GLUCOSE INCREASED [None]
  - BRADYCARDIA [None]
  - DIZZINESS [None]
  - DRUG DOSE OMISSION [None]
  - HYPOTENSION [None]
  - NAUSEA [None]
  - SYNCOPE VASOVAGAL [None]
  - TACHYCARDIA [None]
  - VOMITING [None]
